FAERS Safety Report 8166737-6 (Version None)
Quarter: 2012Q1

REPORT INFORMATION
  Report Type: 
  Country: None (occurrence: None)
  Receive Date: 20120227
  Receipt Date: 20120214
  Transmission Date: 20120608
  Serious: Yes (Hospitalization)
  Sender: FDA-Public Use
  Company Number: US-ROCHE-1031010

PATIENT
  Sex: Female
  Weight: 69.12 kg

DRUGS (10)
  1. GABAPENTIN [Concomitant]
     Dates: start: 20110101, end: 20111231
  2. CETIRIZINE HCL [Concomitant]
     Dates: start: 20110101
  3. CYMBALTA [Concomitant]
  4. MULTI-VITAMIN [Concomitant]
  5. RAMUCIRUMAB [Suspect]
     Indication: BREAST CANCER
     Dosage: ON 15/DEC/2011,LAST DOSE WAS ADMINISTERED PRIOR TO SAE
     Route: 042
     Dates: start: 20110606, end: 20111228
  6. METFORMIN HCL [Concomitant]
     Dates: end: 20111231
  7. LISINOPRIL [Concomitant]
  8. OXYCONTIN [Concomitant]
     Dates: start: 20110101
  9. OXYCODONE HCL [Concomitant]
     Dates: start: 20110101
  10. XELODA [Suspect]
     Indication: BREAST CANCER
     Dosage: TWICE DAILY DAY1 TO DAY 14 OF A 21 DAY CYCLE, ON 15/DEC/2011,LAST DOSE WAS ADMINISTERED
     Route: 048
     Dates: start: 20110606, end: 20111228

REACTIONS (6)
  - DECREASED APPETITE [None]
  - FAILURE TO THRIVE [None]
  - DEHYDRATION [None]
  - FATIGUE [None]
  - NEOPLASM PROGRESSION [None]
  - PROTEIN TOTAL DECREASED [None]
